FAERS Safety Report 24717678 (Version 4)
Quarter: 2025Q3

REPORT INFORMATION
  Report Type: Spontaneous
  Country: IN (occurrence: IN)
  Receive Date: 20241210
  Receipt Date: 20250709
  Transmission Date: 20251020
  Serious: Yes (Other)
  Sender: PFIZER
  Company Number: IN-PFIZER INC-PV202300064514

PATIENT
  Age: 40 Year
  Sex: Male
  Weight: 74.9 kg

DRUGS (52)
  1. LORLATINIB [Suspect]
     Active Substance: LORLATINIB
     Indication: Lung adenocarcinoma
     Dates: start: 201806
  2. LORLATINIB [Suspect]
     Active Substance: LORLATINIB
     Dosage: 50 MG, 1X/DAY
     Route: 048
  3. LORLATINIB [Suspect]
     Active Substance: LORLATINIB
     Route: 048
     Dates: start: 202303, end: 20240630
  4. LORLATINIB [Suspect]
     Active Substance: LORLATINIB
     Dosage: WITH 8 OZ (240 ML) OF WATER
     Route: 048
  5. CARBOPLATIN [Concomitant]
     Active Substance: CARBOPLATIN
     Indication: Chemotherapy
  6. KABIPEM [Concomitant]
     Indication: Chemotherapy
     Dates: end: 20221104
  7. KABIPEM [Concomitant]
  8. KABIPEM [Concomitant]
     Dates: start: 20231027
  9. KABIPEM [Concomitant]
     Route: 058
     Dates: start: 20240109
  10. KABIPEM [Concomitant]
     Route: 058
     Dates: start: 20240830
  11. KABIPEM [Concomitant]
     Route: 058
     Dates: start: 20240920
  12. KABIPEM [Concomitant]
  13. KABIPEM [Concomitant]
     Dosage: 750 MG, 1X/DAY
     Dates: start: 20250429
  14. CYANOCOBALAMIN [Concomitant]
     Active Substance: CYANOCOBALAMIN
     Dates: start: 20230721
  15. CYANOCOBALAMIN [Concomitant]
     Active Substance: CYANOCOBALAMIN
     Dates: start: 20230929
  16. FOLVITE [Concomitant]
     Active Substance: FOLIC ACID
     Dosage: 5 MG, 1X/DAY X21 DAYS
     Dates: start: 20230818
  17. FOLVITE [Concomitant]
     Active Substance: FOLIC ACID
     Dosage: 5 MG, 1X/DAY X21 DAYS
     Dates: start: 20231027
  18. FOLVITE [Concomitant]
     Active Substance: FOLIC ACID
     Dosage: 5 MG, 1X/DAY X21 DAYS
     Dates: start: 20240109
  19. FOLVITE [Concomitant]
     Active Substance: FOLIC ACID
     Dosage: 5 MG, 1X/DAY X 21 DAYS
     Dates: start: 20240830
  20. FOLVITE [Concomitant]
     Active Substance: FOLIC ACID
     Dosage: 5 MG, 1X/DAY X 21 DAYS
     Dates: start: 20240920
  21. FOLVITE [Concomitant]
     Active Substance: FOLIC ACID
     Dosage: 5 MG, 1X/DAY X 21 DAYS
     Dates: start: 20250429
  22. LEVERA [LEVETIRACETAM] [Concomitant]
     Dosage: 750 MG, 2X/DAY, 8AM AND 8PM
     Dates: start: 20230819
  23. LEVERA [LEVETIRACETAM] [Concomitant]
     Dosage: 750 MG, 2X/DAY, 8AM AND 8PM
     Dates: start: 20231027
  24. LEVERA [LEVETIRACETAM] [Concomitant]
     Dosage: 750 MG, 2X/DAY, 8AM AND 8PM
     Dates: start: 20240109
  25. LEVERA [LEVETIRACETAM] [Concomitant]
     Dosage: 750 MG, 2X/DAY, 8AM AND 8PM
     Dates: start: 20240830
  26. LEVERA [LEVETIRACETAM] [Concomitant]
     Dosage: 750 MG, 2X/DAY, 8AM AND 8PM X 21 DAYS
     Dates: start: 20240920
  27. LEVERA [LEVETIRACETAM] [Concomitant]
     Dosage: 750 MG, 2X/DAY (TWICE A DAY 8:00AM AND 8:00PM)
     Dates: start: 20250429
  28. PEGEX [Concomitant]
     Route: 058
     Dates: start: 20230819
  29. PEGEX [Concomitant]
     Route: 058
     Dates: start: 20231027
  30. PEGEX [Concomitant]
     Route: 058
     Dates: start: 20240110
  31. ALLEGRA [Concomitant]
     Active Substance: FEXOFENADINE HYDROCHLORIDE
     Indication: Pruritus
     Dosage: 120 MG, 1X/DAY (IF THERE IS ITCHING, THEN ONCE A DAY)
     Dates: start: 20230818
  32. ALLEGRA [Concomitant]
     Active Substance: FEXOFENADINE HYDROCHLORIDE
     Dosage: 120 MG, 1X/DAY (IF THERE IS ITCHING, THEN ONCE A DAY)
     Dates: start: 20231027
  33. ALLEGRA [Concomitant]
     Active Substance: FEXOFENADINE HYDROCHLORIDE
     Dosage: 120 MG, 1X/DAY (IF THERE IS ITCHING, THEN ONCE A DAY)
     Dates: start: 20240109
  34. ALLEGRA [Concomitant]
     Active Substance: FEXOFENADINE HYDROCHLORIDE
     Dosage: 120 MG, 1X/DAY (IF THERE IS ITCHING, THEN ONCE A DAY)
     Dates: start: 20240830
  35. ALLEGRA [Concomitant]
     Active Substance: FEXOFENADINE HYDROCHLORIDE
     Dosage: 120 MG, 1X/DAY (IF THERE IS ITCHING, THEN ONCE A DAY)
     Dates: start: 20240920
  36. ALLEGRA [Concomitant]
     Active Substance: FEXOFENADINE HYDROCHLORIDE
     Dosage: 120 MG, 1X/DAY (IF THERE IS ITCHING, THEN ONCE A DAY)
     Dates: start: 20250429
  37. ROZAVEL [Concomitant]
     Dosage: 2 DF, 1X/DAY X 21 DAYS BEFORE BED
     Dates: start: 20230818
  38. ROZAVEL [Concomitant]
     Dosage: 2 TABLET, 1X/DAY X 21 DAYS BEFORE BED
     Dates: start: 20231027
  39. ROZAVEL [Concomitant]
     Dosage: 2 TABLET, 1X/DAY X 21 DAYS BEFORE BED
     Dates: start: 20240109
  40. ROZAVEL [Concomitant]
     Dosage: 2 DF, 1X/DAY (10 MG X 21 DAYS (ONCE BEFORE BED))
     Dates: start: 20240830
  41. ROZAVEL [Concomitant]
     Dosage: 2 DF, 1X/DAY (10 MG X 21 DAYS (ONCE BEFORE BED))
     Dates: start: 20240920
  42. ROZAVEL [Concomitant]
     Dosage: 2 DF, 1X/DAY  X 21 DAYS (ONCE BEFORE BED)
     Dates: start: 20250429
  43. NEXITO FORTE [Concomitant]
     Dosage: UNK, 1X/DAY AT NIGHT
  44. METOCLOPRAMIDE [Concomitant]
     Active Substance: METOCLOPRAMIDE
     Indication: Nausea
  45. METOCLOPRAMIDE [Concomitant]
     Active Substance: METOCLOPRAMIDE
     Indication: Vomiting
  46. LOPERAMIDE [Concomitant]
     Active Substance: LOPERAMIDE
     Indication: Diarrhoea
  47. BACLOFEN [Concomitant]
     Active Substance: BACLOFEN
     Indication: Hiccups
  48. DEXAMETHASONE [Concomitant]
     Active Substance: DEXAMETHASONE
     Indication: Chemotherapy side effect prophylaxis
     Dosage: 4 MG, 2X/DAY (AFTER FOOD 8 AM AND 2 PM)
  49. PANTOPRAZOLE [Concomitant]
     Active Substance: PANTOPRAZOLE
     Indication: Chemotherapy side effect prophylaxis
     Dosage: 40 MG, 1X/DAY (ON AN EMPTY STOMACH FROM 1 DAY PIOR TO CHEMO)
  50. MAGVION [Concomitant]
     Dosage: 1 DF, 1X/DAY (1 WEEK)
  51. OPTINEURON [CYANOCOBALAMIN;DEXPANTHENOL;NICOTINAMIDE;PYRIDOXINE HYDROC [Concomitant]
     Dosage: 3 ML, 1X/DAY
     Route: 030
     Dates: start: 20240830
  52. OPTINEURON [CYANOCOBALAMIN;DEXPANTHENOL;NICOTINAMIDE;PYRIDOXINE HYDROC [Concomitant]
     Route: 030
     Dates: start: 20250429

REACTIONS (13)
  - Subdural haemorrhage [Unknown]
  - Malignant neoplasm progression [Unknown]
  - Metastases to central nervous system [Unknown]
  - Blood pressure diastolic increased [Not Recovered/Not Resolved]
  - Blood pressure increased [Unknown]
  - Lymph node calcification [Unknown]
  - Hepatic calcification [Unknown]
  - Adrenal calcification [Unknown]
  - Body surface area increased [Unknown]
  - Mood disorder due to a general medical condition [Unknown]
  - Amylase increased [Unknown]
  - Amnesia [Not Recovered/Not Resolved]
  - Dysarthria [Not Recovered/Not Resolved]

NARRATIVE: CASE EVENT DATE: 20220101
